FAERS Safety Report 8122524-6 (Version None)
Quarter: 2012Q1

REPORT INFORMATION
  Report Type: 
  Country: None (occurrence: None)
  Receive Date: 20120206
  Receipt Date: 20120130
  Transmission Date: 20120608
  Serious: Yes (Other)
  Sender: FDA-Public Use
  Company Number: CIO12001962

PATIENT
  Age: 41 Year

DRUGS (1)
  1. VAPORUB, FORM/VERSION UNKNOWN(CAMPHOR 129-150 MG, CEDAR LEAF OIL UNKNO [Suspect]

REACTIONS (2)
  - PULMONARY FIBROSIS [None]
  - LUNG INFILTRATION [None]
